FAERS Safety Report 13609649 (Version 3)
Quarter: 2017Q2

REPORT INFORMATION
  Report Type: Spontaneous
  Country: US (occurrence: US)
  Receive Date: 20170602
  Receipt Date: 20170621
  Transmission Date: 20170830
  Serious: No
  Sender: FDA-Public Use
  Company Number: US-ACTELION-A-US2017-154631

PATIENT
  Age: 62 Year
  Sex: Male

DRUGS (1)
  1. VALCHLOR [Suspect]
     Active Substance: MECHLORETHAMINE
     Indication: MYCOSIS FUNGOIDES
     Dosage: UNK
     Route: 061
     Dates: start: 20170517

REACTIONS (8)
  - Application site discharge [Not Recovered/Not Resolved]
  - Application site pain [Not Recovered/Not Resolved]
  - Application site discolouration [Unknown]
  - Application site vesicles [Unknown]
  - Skin papilloma [Not Recovered/Not Resolved]
  - Application site burn [Unknown]
  - Application site exfoliation [Not Recovered/Not Resolved]
  - Application site scab [Not Recovered/Not Resolved]

NARRATIVE: CASE EVENT DATE: 20170606
